FAERS Safety Report 5533959-X (Version None)
Quarter: 2007Q4

REPORT INFORMATION
  Report Type: 
  Country: None (occurrence: None)
  Receive Date: 20071129
  Receipt Date: 20071116
  Transmission Date: 20080405
  Serious: Yes (Other)
  Sender: FDA-Public Use
  Company Number: 230098M07GBR

PATIENT
  Age: 48 Year
  Sex: Female

DRUGS (1)
  1. REBIF [Suspect]
     Dosage: 44 MCG, 3 IN 1 WEEKS, SUBCUTANEOUS 3 IN 1 WEEKS, SUBCUTANEOUS
     Route: 058

REACTIONS (1)
  - RETINAL VEIN OCCLUSION [None]
